FAERS Safety Report 9333207 (Version 3)
Quarter: 2013Q4

REPORT INFORMATION
  Report Type: Report from Study
  Country: US (occurrence: US)
  Receive Date: 20130606
  Receipt Date: 20131011
  Transmission Date: 20140711
  Serious: Yes (Other)
  Sender: FDA-Public Use
  Company Number: US-US-EMD SERONO, INC.-7215144

PATIENT
  Age: 57 Year
  Sex: Male

DRUGS (1)
  1. REBIF [Suspect]
     Indication: PRODUCT USED FOR UNKNOWN INDICATION
     Route: 058
     Dates: start: 20090321

REACTIONS (3)
  - Type 1 diabetes mellitus [Unknown]
  - Injection site bruising [Unknown]
  - Injection site pain [Not Recovered/Not Resolved]
